FAERS Safety Report 17206769 (Version 1)
Quarter: 2019Q4

REPORT INFORMATION
  Report Type: Spontaneous
  Country: US (occurrence: US)
  Receive Date: 20191227
  Receipt Date: 20191227
  Transmission Date: 20200122
  Serious: Yes (Death, Life-Threatening, Hospitalization, Other)
  Sender: FDA-Public Use
  Company Number: US-SCIEGEN PHARMACEUTICALS INC-2019SCILIT00387

PATIENT
  Age: 68 Year
  Sex: Male

DRUGS (4)
  1. VITAMIN K [Interacting]
     Active Substance: PHYTONADIONE
  2. METFORMIN HYDROCHLORIDETABLETS [Suspect]
     Active Substance: METFORMIN HYDROCHLORIDE
  3. GLYBURIDE. [Suspect]
     Active Substance: GLYBURIDE
  4. VASOPRESSORS [Interacting]
     Active Substance: UNSPECIFIED INGREDIENT

REACTIONS (8)
  - Metabolic acidosis [Unknown]
  - Brain death [Fatal]
  - Respiratory depression [Unknown]
  - Depressed level of consciousness [Unknown]
  - Pancytopenia [Unknown]
  - Toxicity to various agents [Fatal]
  - Coma [Unknown]
  - Hepatotoxicity [Unknown]
